APPROVED DRUG PRODUCT: FLUPHENAZINE HYDROCHLORIDE
Active Ingredient: FLUPHENAZINE HYDROCHLORIDE
Strength: 5MG
Dosage Form/Route: TABLET;ORAL
Application: A215141 | Product #003 | TE Code: AB
Applicant: ZAMEER PHARMACEUTICALS LLC
Approved: Oct 20, 2021 | RLD: No | RS: No | Type: RX